FAERS Safety Report 7264860-1 (Version None)
Quarter: 2011Q1

REPORT INFORMATION
  Report Type: 
  Country: None (occurrence: None)
  Receive Date: 20110131
  Receipt Date: 20100917
  Transmission Date: 20110831
  Serious: Yes (Hospitalization, Other)
  Sender: FDA-Public Use
  Company Number: US-BAYER-201036760NA

PATIENT
  Sex: Female
  Weight: 81.633 kg

DRUGS (23)
  1. ROCEPHIN [Concomitant]
     Dosage: UNK
  2. HYDROMORPHONE [Concomitant]
  3. PONSTEL [Concomitant]
  4. DEPO-PROVERA [Concomitant]
     Dosage: ONCE EVERY 3 MONTH
     Dates: start: 20060914
  5. ALLEGRA [Concomitant]
  6. LOMOTIL [DIPHENOXYLATE HYDROCHLORIDE] [Concomitant]
  7. LEVSIN [Concomitant]
     Indication: NAUSEA
     Dosage: 1 TAB Q 4 HRS
     Dates: start: 20060914
  8. YAZ [Suspect]
  9. YASMIN [Suspect]
     Indication: ACNE
     Dosage: 1 TABLET DAILY
     Dates: start: 20050331
  10. YASMIN [Suspect]
     Indication: CONTRACEPTION
  11. TYLENOL REGULAR [Concomitant]
     Indication: INSOMNIA
     Dosage: ALMOST DAILY
  12. BIAXIN [Concomitant]
  13. LEVSIN [Concomitant]
     Indication: ABDOMINAL PAIN
  14. OCELLA [Suspect]
     Indication: ACNE
  15. KETOROLAC [Concomitant]
  16. DONNATAL [Concomitant]
  17. ONDANSETRON [Concomitant]
  18. TYLENOL REGULAR [Concomitant]
     Indication: MIGRAINE
  19. MULTIVITAMIN [Concomitant]
  20. DOXYCYCLINE [Concomitant]
  21. DARVOCET-N 100 [Concomitant]
  22. DIETARY SUPPLEMENTS [Concomitant]
  23. DIFLUCAN [Concomitant]

REACTIONS (5)
  - ABDOMINAL PAIN LOWER [None]
  - ABDOMINAL TENDERNESS [None]
  - NEPHROLITHIASIS [None]
  - CHOLELITHIASIS [None]
  - CHOLECYSTITIS ACUTE [None]
